FAERS Safety Report 16635483 (Version 1)
Quarter: 2019Q3

REPORT INFORMATION
  Report Type: Spontaneous
  Country: DE (occurrence: DE)
  Receive Date: 20190726
  Receipt Date: 20190726
  Transmission Date: 20191004
  Serious: Yes (Hospitalization, Other)
  Sender: FDA-Public Use
  Company Number: DE-TEVA-2019-DE-1083065

PATIENT
  Age: 68 Year
  Sex: Male

DRUGS (15)
  1. PREDNISOLON [Concomitant]
     Active Substance: PREDNISOLONE
     Dosage: 10 MG, 1-0-0-0
     Route: 065
  2. PANTOPRAZOL [Concomitant]
     Active Substance: PANTOPRAZOLE SODIUM
     Dosage: 40 MG, 1-0-1-0
     Route: 065
  3. TRAMADOL. [Concomitant]
     Active Substance: TRAMADOL
     Route: 065
  4. XIPAMIDE [Suspect]
     Active Substance: XIPAMIDE
     Dosage: 10 MG, 0-1-0-0
     Route: 065
  5. MIRTAZAPIN [Concomitant]
     Active Substance: MIRTAZAPINE
     Dosage: 15 MG, 0-0-0-1
     Route: 065
  6. METOPROLOL. [Concomitant]
     Active Substance: METOPROLOL
     Dosage: 23.75 MG, 1-0-1-0
     Route: 065
  7. LEVOTHYROXINE SODIUM, POTASSIUM IODIDE [Concomitant]
     Dosage: 150|196.2 ?G, 1-0-0-0
     Route: 065
  8. IBUPROFEN. [Suspect]
     Active Substance: IBUPROFEN
     Dosage: 600 MG, NEED; 0.5-0-0-0
     Route: 065
  9. ROFLUMILAST. [Concomitant]
     Active Substance: ROFLUMILAST
     Dosage: 500 ?G, 1-0-0-0
     Route: 065
  10. FUROSEMIDE. [Suspect]
     Active Substance: FUROSEMIDE
     Dosage: 40 MG, 1-1-0-0
     Route: 065
  11. ELIQUIS [Suspect]
     Active Substance: APIXABAN
     Dosage: 5 MG, 1-0-1-0
     Route: 065
  12. SALBUTAMOL [Concomitant]
     Active Substance: ALBUTEROL
     Dosage: 0.12 MG, NEED; 2 STROKES 2-3 X/T GL., DOSING AEROSOL
     Route: 065
  13. PRAMIPEXOL [Concomitant]
     Active Substance: PRAMIPEXOLE
     Dosage: 0.25 MG, 0-0-2-0
     Route: 065
  14. SALMETEROL/FLUTICASON [Concomitant]
     Active Substance: FLUTICASONE PROPIONATE\SALMETEROL XINAFOATE
     Dosage: 36.32|250 PG, 2-0-2-0, DOSING AEROSOL
     Route: 065
  15. FORMOTEROL/ACLIDINIUMBROMID [Concomitant]
     Dosage: 12|400 MICROGRAMS, 1-0-1-0, DOSING AEROSOL
     Route: 065

REACTIONS (5)
  - Dehydration [Unknown]
  - Haematochezia [Unknown]
  - Renal failure [Unknown]
  - Hypotension [Unknown]
  - Abdominal pain lower [Unknown]
